FAERS Safety Report 10583292 (Version 1)
Quarter: 2014Q4

REPORT INFORMATION
  Report Type: Spontaneous
  Country: US (occurrence: None)
  Receive Date: 20141112
  Receipt Date: 20141112
  Transmission Date: 20150529
  Serious: Yes (Other)
  Sender: FDA-Public Use
  Company Number: IPC201410-000595

PATIENT
  Age: 40 Year
  Sex: Male
  Weight: 87.3 kg

DRUGS (10)
  1. HYDROCHLOROTHIAZIDE (HYDROCHLOROTHIAZIDE) (HYDROCHLOROTHIAZIDE) [Suspect]
     Active Substance: HYDROCHLOROTHIAZIDE
  2. GEMFIBROZIL. [Suspect]
     Active Substance: GEMFIBROZIL
  3. LISINOPRIL (LISINOPRIL) (LISINOPRIL) [Suspect]
     Active Substance: LISINOPRIL
  4. LAMOTRIGINE (LAMOTRIGINE) (LAMOTRIGINE) [Suspect]
     Active Substance: LAMOTRIGINE
  5. IBUPROFEN (IBUPROFEN) (IBUPROFEN) [Suspect]
     Active Substance: IBUPROFEN
     Indication: PAIN
  6. COLCHICINE (COLCHICINE) (COLCHICINE) [Suspect]
     Active Substance: COLCHICINE
     Indication: GOUT
  7. METFORMIN HYDROCHLORIDE (METFORMIN HYDROCHLORIDE) (METFORMIN HYDROCHLORIDE) [Suspect]
     Active Substance: METFORMIN HYDROCHLORIDE
  8. SERTRALINE [Suspect]
     Active Substance: SERTRALINE HYDROCHLORIDE
  9. GLIPIZIDE. [Suspect]
     Active Substance: GLIPIZIDE
  10. QUETIAPINE (QUETIAPINE) (QUETIAPINE) [Suspect]
     Active Substance: QUETIAPINE

REACTIONS (13)
  - Hypoglycaemia [None]
  - Agitation [None]
  - Hepatomegaly [None]
  - Dyspnoea [None]
  - Blood glucose increased [None]
  - Renal failure [None]
  - Nausea [None]
  - Hypophagia [None]
  - Viral infection [None]
  - Tic [None]
  - Decreased appetite [None]
  - Abdominal pain [None]
  - Haemoglobin decreased [None]
